FAERS Safety Report 9272528 (Version 2)
Quarter: 2014Q3

REPORT INFORMATION
  Report Type: Report from Study
  Country: FR (occurrence: FR)
  Receive Date: 20130506
  Receipt Date: 20140703
  Transmission Date: 20150326
  Serious: Yes (Hospitalization, Other)
  Sender: FDA-Public Use
  Company Number: FR-GLAXOSMITHKLINE-B0836611A

PATIENT
  Age: 9 Year
  Sex: Male
  Weight: 19.2 kg

DRUGS (22)
  1. BECOTIDE [Suspect]
     Active Substance: BECLOMETHASONE DIPROPIONATE
     Indication: PRODUCT USED FOR UNKNOWN INDICATION
     Route: 045
     Dates: start: 20120405, end: 20120427
  2. BACTRIM [Concomitant]
     Active Substance: SULFAMETHOXAZOLE\TRIMETHOPRIM
     Dosage: 800MG THREE TIMES PER WEEK
     Dates: start: 20110722
  3. MORPHINE [Concomitant]
     Active Substance: MORPHINE
     Dosage: 24MG PER DAY
     Dates: start: 20101102, end: 20101111
  4. XANAX [Concomitant]
     Active Substance: ALPRAZOLAM
     Dosage: .25MG PER DAY
     Dates: start: 20101106, end: 20101110
  5. VINORELBINE TARTRATE. [Suspect]
     Active Substance: VINORELBINE TARTRATE
     Indication: RHABDOMYOSARCOMA
     Dosage: 17MG CYCLIC
     Route: 042
     Dates: start: 20110610
  6. CYCLOPHOSPHAMIDE. [Suspect]
     Active Substance: CYCLOPHOSPHAMIDE
     Indication: SARCOMA
     Dosage: 630MG CYCLIC
     Route: 042
     Dates: start: 20110105
  7. PROCTOLOG [Concomitant]
     Active Substance: TRIMEBUTINE
  8. BEVACIZUMAB [Suspect]
     Active Substance: BEVACIZUMAB
     Indication: RHABDOMYOSARCOMA
     Route: 042
     Dates: start: 20101103
  9. DACTINOMYCIN [Suspect]
     Active Substance: DACTINOMYCIN
     Indication: RHABDOMYOSARCOMA
     Dosage: 1.2MG PER DAY
     Route: 042
     Dates: start: 20101103
  10. VINCRISTINE [Suspect]
     Active Substance: VINCRISTINE
     Indication: RHABDOMYOSARCOMA
     Dosage: 1.3MG PER DAY
     Route: 042
     Dates: start: 20101103
  11. LAROXYL [Concomitant]
     Active Substance: AMITRIPTYLINE
  12. IFOSFAMIDE. [Suspect]
     Active Substance: IFOSFAMIDE
     Indication: RHABDOMYOSARCOMA
     Dosage: 6GM2 CYCLIC
     Route: 042
     Dates: start: 20101103, end: 20101216
  13. RIVOTRIL [Concomitant]
     Active Substance: CLONAZEPAM
     Dates: start: 20120405
  14. NEURONTIN [Concomitant]
     Active Substance: GABAPENTIN
     Dosage: 200MG PER DAY
     Dates: start: 20101104, end: 20101112
  15. AERIUS [Concomitant]
     Active Substance: DESLORATADINE
     Dosage: 5MG PER DAY
     Dates: start: 20120327
  16. KETAMINE [Concomitant]
     Active Substance: KETAMINE
  17. FLIXOTIDE [Concomitant]
     Active Substance: FLUTICASONE PROPIONATE
     Dates: start: 20101102
  18. ZOPHREN [Concomitant]
     Active Substance: ONDANSETRON
     Dosage: 4MG PER DAY
     Dates: start: 20101110, end: 20101110
  19. PLITICAN [Concomitant]
     Active Substance: ALIZAPRIDE HYDROCHLORIDE
     Dates: start: 20101103
  20. DOXORUBICIN [Suspect]
     Active Substance: DOXORUBICIN
     Indication: RHABDOMYOSARCOMA
     Dosage: 25MG PER DAY
     Route: 042
     Dates: start: 20101103
  21. ROCEPHINE [Concomitant]
     Active Substance: CEFTRIAXONE SODIUM
     Dates: start: 20101223, end: 20110103
  22. DUPHALAC [Concomitant]
     Active Substance: LACTULOSE
     Dosage: 1ML TWICE PER DAY
     Dates: start: 20101106, end: 20101110

REACTIONS (7)
  - Mucosal inflammation [Recovered/Resolved]
  - Epistaxis [Recovered/Resolved]
  - Epistaxis [Recovered/Resolved]
  - Febrile bone marrow aplasia [Recovered/Resolved]
  - Convulsion [Recovered/Resolved]
  - Mucosal inflammation [Recovered/Resolved]
  - Gingival bleeding [Recovered/Resolved]

NARRATIVE: CASE EVENT DATE: 20101107
